FAERS Safety Report 4420463-5 (Version None)
Quarter: 2004Q3

REPORT INFORMATION
  Report Type: 
  Country: None (occurrence: None)
  Receive Date: 20040809
  Receipt Date: 20040305
  Transmission Date: 20050211
  Serious: No
  Sender: FDA-Public Use
  Company Number: US-GLAXOSMITHKLINE-A0501425A

PATIENT
  Age: 22 Year
  Sex: Male

DRUGS (1)
  1. PAXIL CR [Suspect]
     Dosage: 12.5MG AS REQUIRED
     Route: 048

REACTIONS (2)
  - BALANCE DISORDER [None]
  - FATIGUE [None]
